FAERS Safety Report 9128004 (Version 1)
Quarter: 2013Q1

REPORT INFORMATION
  Report Type: Report from Study
  Country: US (occurrence: US)
  Receive Date: 20130228
  Receipt Date: 20130228
  Transmission Date: 20140127
  Serious: Yes (Hospitalization)
  Sender: FDA-Public Use
  Company Number: US-ACTELION-A-NJ2013-79849

PATIENT
  Age: 57 Year
  Sex: Male

DRUGS (1)
  1. VELETRI [Suspect]
     Indication: PORTOPULMONARY HYPERTENSION
     Dosage: 30 NG/KG, PER MIN
     Route: 041
     Dates: start: 20121012

REACTIONS (2)
  - Mental status changes [Unknown]
  - Asthenia [Unknown]
